FAERS Safety Report 23346268 (Version 1)
Quarter: 2023Q4

REPORT INFORMATION
  Report Type: Spontaneous
  Country: US (occurrence: None)
  Receive Date: 20231227
  Receipt Date: 20231227
  Transmission Date: 20240110
  Serious: Yes (Other)
  Sender: FDA-Public Use
  Company Number: None

PATIENT
  Sex: Female

DRUGS (2)
  1. RECLAST [Suspect]
     Active Substance: ZOLEDRONIC ACID
     Indication: Osteoporosis
     Dates: start: 20220619, end: 20230720
  2. ENBREL [Suspect]
     Active Substance: ETANERCEPT
     Indication: Rheumatoid arthritis
     Dates: end: 20231027

REACTIONS (16)
  - Arthralgia [None]
  - Bone pain [None]
  - Tremor [None]
  - Brain fog [None]
  - Pain in extremity [None]
  - Neuralgia [None]
  - Heart rate increased [None]
  - Headache [None]
  - Dizziness [None]
  - Nausea [None]
  - Vomiting [None]
  - Rash [None]
  - Rash [None]
  - Lupus-like syndrome [None]
  - Pain [None]
  - Infusion related reaction [None]

NARRATIVE: CASE EVENT DATE: 20220625
